FAERS Safety Report 6915197-9 (Version None)
Quarter: 2010Q3

REPORT INFORMATION
  Report Type: 
  Country: None (occurrence: None)
  Receive Date: 20100805
  Receipt Date: 20100805
  Transmission Date: 20110219
  Serious: No
  Sender: FDA-Public Use
  Company Number: None

PATIENT
  Age: 62 Year
  Sex: Male
  Weight: 94 kg

DRUGS (2)
  1. AMLODIPINE [Suspect]
     Indication: DIABETES MELLITUS
     Dosage: 10 MG EVERY DAY PO
     Route: 048
     Dates: start: 20071009, end: 20100510
  2. AMLODIPINE [Suspect]
     Indication: HYPERTENSION
     Dosage: 10 MG EVERY DAY PO
     Route: 048
     Dates: start: 20071009, end: 20100510

REACTIONS (1)
  - OEDEMA [None]
